FAERS Safety Report 23344359 (Version 1)
Quarter: 2023Q4

REPORT INFORMATION
  Report Type: Spontaneous
  Country: US (occurrence: US)
  Receive Date: 20231228
  Receipt Date: 20231228
  Transmission Date: 20240110
  Serious: Yes (Other)
  Sender: FDA-Public Use
  Company Number: US-BRISTOL-MYERS SQUIBB COMPANY-2023-187061

PATIENT
  Age: 75 Year
  Sex: Female
  Weight: 109.77 kg

DRUGS (1)
  1. REVLIMID [Suspect]
     Active Substance: LENALIDOMIDE
     Indication: Follicular lymphoma
     Dosage: FREQUENCY REPORTED AS: 21D ON 7D OFF.
     Route: 048
     Dates: start: 20231101

REACTIONS (1)
  - Vasculitis [Recovering/Resolving]
